FAERS Safety Report 18800176 (Version 1)
Quarter: 2021Q1

REPORT INFORMATION
  Report Type: Spontaneous
  Country: US (occurrence: US)
  Receive Date: 20210128
  Receipt Date: 20210128
  Transmission Date: 20210419
  Serious: Yes (Other)
  Sender: FDA-Public Use
  Company Number: US-GRANULES-US-2021GRALIT00061

PATIENT
  Age: 70 Year
  Sex: Female

DRUGS (2)
  1. APIXABAN [Concomitant]
     Active Substance: APIXABAN
     Indication: ATRIAL FIBRILLATION
     Route: 065
  2. NAPROXEN SODIUM. [Suspect]
     Active Substance: NAPROXEN SODIUM
     Indication: BACK PAIN
     Dosage: TWICE DAILY
     Route: 065

REACTIONS (2)
  - Liver abscess [Recovering/Resolving]
  - Gastric ulcer [Recovering/Resolving]
